FAERS Safety Report 10010053 (Version 2)
Quarter: 2014Q1

REPORT INFORMATION
  Report Type: Spontaneous
  Country: US (occurrence: US)
  Receive Date: 20140312
  Receipt Date: 20140312
  Transmission Date: 20141002
  Serious: No
  Sender: FDA-Public Use
  Company Number: US-INCYTE CORPORATION-2013IN000404

PATIENT
  Age: 76 Year
  Sex: Female

DRUGS (3)
  1. JAKAFI [Suspect]
     Indication: MYELOFIBROSIS
     Dosage: 10 MG, QD
     Route: 048
     Dates: start: 20121219, end: 20130226
  2. JAKAFI [Suspect]
     Indication: MYELOID METAPLASIA
     Dosage: 5 MG, BID
     Dates: start: 20130227
  3. JAKAFI [Suspect]
     Dosage: 10 MG, BID
     Route: 048
     Dates: start: 20130404

REACTIONS (3)
  - Fatigue [Unknown]
  - Anaemia [Unknown]
  - Wrong technique in drug usage process [Unknown]
